FAERS Safety Report 7296402-9 (Version None)
Quarter: 2011Q1

REPORT INFORMATION
  Report Type: 
  Country: None (occurrence: None)
  Receive Date: 20110216
  Receipt Date: 20110207
  Transmission Date: 20110831
  Serious: Yes (Hospitalization)
  Sender: FDA-Public Use
  Company Number: FR-BAXTER-2010BH028472

PATIENT
  Age: 54 Year
  Sex: Female

DRUGS (11)
  1. METHYLPREDNISOLONE [Suspect]
     Route: 065
     Dates: start: 20060608, end: 20060608
  2. MABTHERA [Suspect]
     Indication: B-CELL LYMPHOMA
     Route: 042
     Dates: start: 20060101, end: 20080513
  3. VINCRISTINE SULFATE [Suspect]
     Indication: B-CELL LYMPHOMA
     Route: 042
     Dates: start: 20060202, end: 20060518
  4. CORTANCYL [Suspect]
     Indication: B-CELL LYMPHOMA
     Route: 065
     Dates: start: 20060202, end: 20060518
  5. MABTHERA [Suspect]
     Route: 042
     Dates: start: 20060202, end: 20060518
  6. MABTHERA [Suspect]
     Route: 042
     Dates: start: 20060628, end: 20060628
  7. DOXORUBICIN GENERIC [Suspect]
     Indication: B-CELL LYMPHOMA
     Route: 042
     Dates: start: 20060202, end: 20060518
  8. METHYLPREDNISOLONE [Suspect]
     Indication: B-CELL LYMPHOMA
     Route: 065
     Dates: start: 20060629, end: 20060629
  9. METHYLPREDNISOLONE [Suspect]
     Route: 065
     Dates: start: 20060202, end: 20060518
  10. CYCLOPHOSPHAMIDE [Suspect]
     Indication: B-CELL LYMPHOMA
     Route: 042
     Dates: start: 20060202, end: 20060518
  11. MABTHERA [Suspect]
     Route: 042
     Dates: start: 20060608, end: 20060608

REACTIONS (3)
  - HYPOGAMMAGLOBULINAEMIA [None]
  - TONSILLITIS [None]
  - INFECTION SUSCEPTIBILITY INCREASED [None]
